FAERS Safety Report 18073347 (Version 1)
Quarter: 2020Q3

REPORT INFORMATION
  Report Type: Other
  Country: US (occurrence: US)
  Receive Date: 20200727
  Receipt Date: 20200727
  Transmission Date: 20201103
  Serious: Yes (Death)
  Sender: FDA-Public Use
  Company Number: US-MISSION PHARMACAL COMPANY-2087765

PATIENT
  Age: 64 Year
  Sex: Male

DRUGS (2)
  1. THIOLA EC [Suspect]
     Active Substance: TIOPRONIN
     Indication: CYSTINURIA
     Route: 048
     Dates: start: 20190927
  2. THIOLA EC [Suspect]
     Active Substance: TIOPRONIN
     Route: 048
     Dates: start: 20190927

REACTIONS (1)
  - Death [Fatal]
